FAERS Safety Report 19042544 (Version 1)
Quarter: 2021Q1

REPORT INFORMATION
  Report Type: Spontaneous
  Country: US (occurrence: US)
  Receive Date: 20210323
  Receipt Date: 20210323
  Transmission Date: 20210420
  Serious: No
  Sender: FDA-Public Use
  Company Number: US-SA-2021SA095312

PATIENT
  Sex: Female

DRUGS (2)
  1. DUPIXENT [Suspect]
     Active Substance: DUPILUMAB
     Indication: DERMATITIS ATOPIC
     Dosage: 300 MG; QOW
     Route: 058
     Dates: start: 202102
  2. DUPIXENT [Suspect]
     Active Substance: DUPILUMAB
     Indication: PSORIASIS

REACTIONS (7)
  - Skin hypertrophy [Unknown]
  - Therapeutic response decreased [Unknown]
  - Erythema [Unknown]
  - Scratch [Unknown]
  - Dry skin [Unknown]
  - Pruritus [Unknown]
  - Pain [Unknown]
